FAERS Safety Report 6279173-4 (Version None)
Quarter: 2009Q3

REPORT INFORMATION
  Report Type: 
  Country: None (occurrence: None)
  Receive Date: 20090723
  Receipt Date: 20090709
  Transmission Date: 20100115
  Serious: Yes (Death, Life-Threatening, Hospitalization)
  Sender: FDA-Public Use
  Company Number: JP-BAYER-200912031BYL

PATIENT
  Age: 79 Year
  Sex: Male
  Weight: 50 kg

DRUGS (13)
  1. NEXAVAR [Suspect]
     Indication: HEPATIC CANCER STAGE IV
     Dosage: TOTAL DAILY DOSE: 800 MG  UNIT DOSE: 200 MG
     Route: 048
     Dates: start: 20090529, end: 20090603
  2. NEXAVAR [Suspect]
     Dosage: UNIT DOSE: 200 MG
     Route: 048
     Dates: start: 20090609, end: 20090610
  3. GAMOFA D [Concomitant]
     Indication: PROPHYLAXIS
     Dosage: BEFORE NEXAVAR ADMINISTRATION
     Route: 048
     Dates: end: 20090603
  4. BIO-THREE [Concomitant]
     Dosage: BEFORE NEXAVAR ADMINISTRATION
     Route: 048
     Dates: end: 20090603
  5. HERBESSER [Concomitant]
     Dosage: BEFORE NEXAVAR ADMINISTRATION
     Route: 048
     Dates: end: 20090603
  6. TAURINE [Concomitant]
     Dosage: UNIT DOSE: 1.02 G
     Route: 048
     Dates: end: 20090603
  7. BLOPRESS [Concomitant]
     Dosage: BEFORE NEXAVAR ADMINISTRATION
     Route: 048
     Dates: end: 20090603
  8. MAGLAX [Concomitant]
     Route: 048
     Dates: end: 20090603
  9. ALLEGRA [Concomitant]
     Route: 048
     Dates: end: 20090603
  10. ROCORNAL [Concomitant]
     Dosage: BEFORE NEXAVAR ADMINISTRATION
     Route: 048
     Dates: end: 20090603
  11. AMOBAN [Concomitant]
     Dosage: BEFORE NEXAVAR ADMINISTRATION
     Route: 048
     Dates: end: 20090603
  12. AMINOLEBAN EN [Concomitant]
     Dosage: BEFORE NEXAVAR ADMINISTRATION
     Route: 048
     Dates: end: 20090603
  13. GASMOTIN [Concomitant]
     Dosage: BEFORE NEXAVAR ADMINISTRATION
     Route: 048
     Dates: end: 20090603

REACTIONS (2)
  - MALLORY-WEISS SYNDROME [None]
  - PNEUMONIA ASPIRATION [None]
